FAERS Safety Report 5066888-9 (Version None)
Quarter: 2006Q3

REPORT INFORMATION
  Report Type: 
  Country: None (occurrence: None)
  Receive Date: 20060728
  Receipt Date: 20060713
  Transmission Date: 20061208
  Serious: Yes (Hospitalization)
  Sender: FDA-Public Use
  Company Number: L06-USA-02696-01

PATIENT
  Age: 49 Year
  Sex: Female

DRUGS (7)
  1. CARBAMAZEPINE [Suspect]
     Indication: CONVULSION
     Dosage: 600 MG QD
  2. CARBAMAZEPINE [Suspect]
     Indication: CONVULSION
     Dosage: 300 MG QD
  3. CARBAMAZEPINE [Suspect]
     Indication: CONVULSION
     Dosage: 100 MG QD
  4. CARBAMAZEPINE [Suspect]
     Indication: CONVULSION
     Dosage: 600 MG QD
  5. RITONAVIR [Suspect]
     Indication: HIV INFECTION
     Dosage: 400 MG BID
  6. EFAVIRENZ [Suspect]
     Indication: HIV INFECTION
     Dosage: 600 MG QHS
  7. SAQUINAVIR [Concomitant]

REACTIONS (10)
  - ABASIA [None]
  - ABDOMINAL PAIN [None]
  - COORDINATION ABNORMAL [None]
  - DRUG INTERACTION [None]
  - DRUG LEVEL INCREASED [None]
  - DRUG TOXICITY [None]
  - FALL [None]
  - HEMIPARESIS [None]
  - HYPONATRAEMIA [None]
  - NAUSEA [None]
